FAERS Safety Report 5586901-X (Version None)
Quarter: 2008Q1

REPORT INFORMATION
  Report Type: 
  Country: None (occurrence: None)
  Receive Date: 20080110
  Receipt Date: 20080103
  Transmission Date: 20080703
  Serious: Yes (Other)
  Sender: FDA-Public Use
  Company Number: US-ROCHE-539519

PATIENT
  Age: 40 Year
  Sex: Male

DRUGS (2)
  1. PEGASYS [Suspect]
     Route: 058
     Dates: start: 20070615, end: 20071201
  2. COPEGUS [Suspect]
     Route: 048
     Dates: start: 20070615, end: 20071201

REACTIONS (1)
  - CONVULSION [None]
